FAERS Safety Report 10563800 (Version 3)
Quarter: 2015Q1

REPORT INFORMATION
  Report Type: Spontaneous
  Country: JP (occurrence: JP)
  Receive Date: 20141104
  Receipt Date: 20150305
  Transmission Date: 20150720
  Serious: Yes (Death, Other)
  Sender: FDA-Public Use
  Company Number: JP-BRISTOL-MYERS SQUIBB COMPANY-21547765

PATIENT
  Age: 73 Year
  Sex: Male

DRUGS (8)
  1. QUETIAPINE [Concomitant]
     Active Substance: QUETIAPINE
  2. NATRIX [Concomitant]
     Active Substance: INDAPAMIDE
  3. VALPROATE SODIUM. [Concomitant]
     Active Substance: VALPROATE SODIUM
  4. FLUNITRAZEPAM [Concomitant]
     Active Substance: FLUNITRAZEPAM
  5. NITRAZEPAM [Concomitant]
     Active Substance: NITRAZEPAM
  6. LIMAS [Concomitant]
     Active Substance: LITHIUM CARBONATE
  7. MAGNESIUMOXIDE [Concomitant]
     Active Substance: MAGNESIUM OXIDE
  8. ABILIFY [Suspect]
     Active Substance: ARIPIPRAZOLE
     Indication: BIPOLAR DISORDER
     Dosage: 24 MG, UNK
     Route: 048
     Dates: start: 20141001, end: 20141008

REACTIONS (3)
  - Cardio-respiratory arrest [Fatal]
  - Dystonia [Fatal]
  - Neuroleptic malignant syndrome [Fatal]

NARRATIVE: CASE EVENT DATE: 20141008
